FAERS Safety Report 25799007 (Version 2)
Quarter: 2025Q4

REPORT INFORMATION
  Report Type: Spontaneous
  Country: GB (occurrence: GB)
  Receive Date: 20250913
  Receipt Date: 20251004
  Transmission Date: 20260117
  Serious: Yes (Death)
  Sender: AMGEN
  Company Number: GB-AMGEN-GBRSP2025181302

PATIENT
  Sex: Female

DRUGS (1)
  1. ROMOSOZUMAB [Suspect]
     Active Substance: ROMOSOZUMAB
     Indication: Osteoporosis postmenopausal
     Dosage: UNK
     Route: 065

REACTIONS (1)
  - Cardiovascular disorder [Fatal]
